FAERS Safety Report 6909510-6 (Version None)
Quarter: 2010Q3

REPORT INFORMATION
  Report Type: 
  Country: None (occurrence: None)
  Receive Date: 20100803
  Receipt Date: 20100722
  Transmission Date: 20110219
  Serious: Yes (Hospitalization)
  Sender: FDA-Public Use
  Company Number: 2010070065

PATIENT
  Age: 25 Year
  Sex: Male

DRUGS (1)
  1. PENICILLAMINE [Suspect]
     Indication: HEPATO-LENTICULAR DEGENERATION

REACTIONS (8)
  - ACUTE HEPATIC FAILURE [None]
  - ANAEMIA [None]
  - DUODENAL ULCER [None]
  - GASTROINTESTINAL HAEMORRHAGE [None]
  - HYPOALBUMINAEMIA [None]
  - HYPOPROTHROMBINAEMIA [None]
  - IRON DEFICIENCY [None]
  - LIVER INJURY [None]
